FAERS Safety Report 5497559-2 (Version None)
Quarter: 2007Q4

REPORT INFORMATION
  Report Type: 
  Country: None (occurrence: None)
  Receive Date: 20071025
  Receipt Date: 20061208
  Transmission Date: 20080405
  Serious: No
  Sender: FDA-Public Use
  Company Number: A0630927A

PATIENT
  Sex: Female

DRUGS (3)
  1. ADVAIR DISKUS 100/50 [Suspect]
     Indication: EMPHYSEMA
     Route: 055
     Dates: start: 20061001
  2. COUMADIN [Concomitant]
  3. OXYGEN [Concomitant]

REACTIONS (2)
  - INCREASED UPPER AIRWAY SECRETION [None]
  - THROAT IRRITATION [None]
